FAERS Safety Report 5220629-0 (Version None)
Quarter: 2007Q1

REPORT INFORMATION
  Report Type: 
  Country: None (occurrence: None)
  Receive Date: 20070122
  Receipt Date: 20070118
  Transmission Date: 20070707
  Serious: Yes (Hospitalization)
  Sender: FDA-Public Use
  Company Number: HQWYE940231OCT06

PATIENT
  Age: 46 Year
  Sex: Male

DRUGS (10)
  1. MYLOTARG [Suspect]
     Indication: ACUTE MYELOID LEUKAEMIA RECURRENT
     Dosage: SEE IMAGE
     Route: 041
     Dates: start: 20051207, end: 20051207
  2. MYLOTARG [Suspect]
     Indication: ACUTE MYELOID LEUKAEMIA RECURRENT
     Dosage: SEE IMAGE
     Route: 041
     Dates: start: 20060529, end: 20060529
  3. CYTARABINE [Suspect]
     Indication: ACUTE MYELOID LEUKAEMIA RECURRENT
     Dosage: INTRAVENOUS
     Route: 042
     Dates: start: 20051207, end: 20051211
  4. CYTARABINE [Suspect]
     Indication: ACUTE MYELOID LEUKAEMIA RECURRENT
     Dosage: INTRAVENOUS
     Route: 042
     Dates: start: 20060529, end: 20060602
  5. G-CSF (GRANULOCYTE COLONY STIMULATING FACTOR,) [Suspect]
     Indication: ACUTE MYELOID LEUKAEMIA RECURRENT
     Dosage: INTRAVENOUS
     Route: 042
     Dates: start: 20051206, end: 20051226
  6. FRAGMIN [Concomitant]
  7. KYTRIL [Concomitant]
  8. SOLU-MEDROL [Concomitant]
  9. NORVASC [Concomitant]
  10. URSO (URSODEOXYCHOLIC ACID) [Concomitant]

REACTIONS (14)
  - ANAEMIA [None]
  - ASPARTATE AMINOTRANSFERASE INCREASED [None]
  - BLOOD ALKALINE PHOSPHATASE INCREASED [None]
  - BLOOD LACTATE DEHYDROGENASE INCREASED [None]
  - C-REACTIVE PROTEIN INCREASED [None]
  - DISSEMINATED INTRAVASCULAR COAGULATION [None]
  - FEBRILE NEUTROPENIA [None]
  - GENERAL PHYSICAL HEALTH DETERIORATION [None]
  - HERPES SIMPLEX [None]
  - INFUSION RELATED REACTION [None]
  - LEUKOPENIA [None]
  - NEUTROPENIA [None]
  - PYREXIA [None]
  - THROMBOCYTOPENIA [None]
